FAERS Safety Report 13815938 (Version 1)
Quarter: 2017Q3

REPORT INFORMATION
  Report Type: Spontaneous
  Country: US (occurrence: US)
  Receive Date: 20170731
  Receipt Date: 20170731
  Transmission Date: 20171127
  Serious: Yes (Hospitalization)
  Sender: FDA-Public Use
  Company Number: US-SA-2016SA136238

PATIENT
  Age: 39 Year
  Sex: Male

DRUGS (8)
  1. AMBIEN [Suspect]
     Active Substance: ZOLPIDEM TARTRATE
     Route: 048
     Dates: end: 2011
  2. FENTANYL. [Suspect]
     Active Substance: FENTANYL
     Route: 065
     Dates: end: 2011
  3. CLONAZEPAM. [Concomitant]
     Active Substance: CLONAZEPAM
     Indication: DEPRESSION
     Dosage: 1MG TABLET BY MOUTH EACH MORNING AND THREE 1MG TABLETS EVERY EVENING
     Route: 048
  4. CLONAZEPAM. [Concomitant]
     Active Substance: CLONAZEPAM
     Indication: SLEEP DISORDER
     Dosage: 1MG TABLET BY MOUTH EACH MORNING AND THREE 1MG TABLETS EVERY EVENING
     Route: 048
  5. DIVALPROEX SODIUM. [Concomitant]
     Active Substance: DIVALPROEX SODIUM
     Indication: BIPOLAR DISORDER
     Route: 048
     Dates: start: 2000
  6. DIVALPROEX SODIUM. [Concomitant]
     Active Substance: DIVALPROEX SODIUM
     Indication: POST-TRAUMATIC STRESS DISORDER
     Route: 048
     Dates: start: 2000
  7. XANAX [Suspect]
     Active Substance: ALPRAZOLAM
     Route: 065
     Dates: end: 2011
  8. HYDROCODONE [Concomitant]
     Active Substance: HYDROCODONE
     Indication: PAIN
     Dosage: DOSE_10/325MG TABLET BY MOUTH EVERY 6 HOURS AS NEEDED
     Route: 048

REACTIONS (3)
  - Drug withdrawal syndrome [Unknown]
  - Back injury [Unknown]
  - Fall [Unknown]

NARRATIVE: CASE EVENT DATE: 2011
